FAERS Safety Report 16358983 (Version 2)
Quarter: 2019Q3

REPORT INFORMATION
  Report Type: Spontaneous
  Country: US (occurrence: US)
  Receive Date: 20190527
  Receipt Date: 20190906
  Transmission Date: 20191004
  Serious: No
  Sender: FDA-Public Use
  Company Number: US-SA-2019SA137196

PATIENT
  Sex: Female

DRUGS (2)
  1. KEVZARA [Suspect]
     Active Substance: SARILUMAB
     Indication: RHEUMATOID ARTHRITIS
     Dosage: 200 MG, QOW
     Route: 058
  2. HUMIRA [Suspect]
     Active Substance: ADALIMUMAB

REACTIONS (3)
  - Laboratory test abnormal [Unknown]
  - Drug hypersensitivity [Unknown]
  - Skin reaction [Unknown]
